FAERS Safety Report 8429611-3 (Version None)
Quarter: 2012Q2

REPORT INFORMATION
  Report Type: 
  Country: None (occurrence: None)
  Receive Date: 20120612
  Receipt Date: 20120611
  Transmission Date: 20120825
  Serious: Yes (Other)
  Sender: FDA-Public Use
  Company Number: PHEH2012US008471

PATIENT
  Sex: Female
  Weight: 98 kg

DRUGS (6)
  1. HYDROCHLOROTHIAZIDE [Concomitant]
     Dosage: 25 MG, BID
  2. HUMALOG [Concomitant]
  3. ENALAPRIL MALEATE [Suspect]
     Indication: HYPERTENSION
     Dosage: 20 MG, BID
     Route: 048
     Dates: end: 20111001
  4. TEKTURNA [Suspect]
     Indication: HYPERTENSION
     Dosage: 300 MG, DAILY
     Route: 048
     Dates: start: 20110701, end: 20111001
  5. NORVASC [Concomitant]
     Dosage: 10 MG, DAILY
  6. WELCHOL [Concomitant]

REACTIONS (2)
  - CEREBROVASCULAR ACCIDENT [None]
  - BLOOD POTASSIUM INCREASED [None]
